FAERS Safety Report 23577762 (Version 3)
Quarter: 2024Q3

REPORT INFORMATION
  Report Type: Spontaneous
  Country: US (occurrence: US)
  Receive Date: 20240228
  Receipt Date: 20240715
  Transmission Date: 20241017
  Serious: Yes (Hospitalization, Other)
  Sender: CSL BEHRING
  Company Number: US-BEH-2024169101

PATIENT
  Age: 6 Year
  Sex: Male

DRUGS (7)
  1. IDELVION [Suspect]
     Active Substance: COAGULATION FACTOR IX RECOMBINANT HUMAN
     Indication: Factor IX deficiency
     Dosage: 1500 INTERNATIONAL UNIT (1350-1650), QW
     Route: 042
     Dates: start: 202205
  2. IDELVION [Suspect]
     Active Substance: COAGULATION FACTOR IX RECOMBINANT HUMAN
     Indication: Factor IX deficiency
     Dosage: 1500 INTERNATIONAL UNIT (1350-1650), QW
     Route: 042
     Dates: start: 202205
  3. IDELVION [Suspect]
     Active Substance: COAGULATION FACTOR IX RECOMBINANT HUMAN
     Indication: Prophylaxis
     Dosage: 1500 INTERNATIONAL UNIT (1350-1650), ONCE DAILY FOR SUSPECTED JOINT OR MUSCLE BLEEDING
     Route: 042
     Dates: start: 202205
  4. IDELVION [Suspect]
     Active Substance: COAGULATION FACTOR IX RECOMBINANT HUMAN
     Indication: Prophylaxis
     Dosage: 1500 INTERNATIONAL UNIT (1350-1650), ONCE DAILY FOR SUSPECTED JOINT OR MUSCLE BLEEDING
     Route: 042
     Dates: start: 202205
  5. IDELVION [Suspect]
     Active Substance: COAGULATION FACTOR IX RECOMBINANT HUMAN
     Dosage: 3000 INTERNATIONAL UNIT (2700-3300), ONCE DAILY FOR SUSPECTED HEAD, NECK OR ABDOMINAL BLEEDING
     Route: 042
     Dates: start: 202205
  6. IDELVION [Suspect]
     Active Substance: COAGULATION FACTOR IX RECOMBINANT HUMAN
     Dosage: 3000 INTERNATIONAL UNIT (2700-3300), ONCE DAILY FOR SUSPECTED HEAD, NECK OR ABDOMINAL BLEEDING
     Route: 042
     Dates: start: 202205
  7. HEPARIN LOCK FLUSH [Concomitant]
     Active Substance: HEPARIN SODIUM

REACTIONS (4)
  - Mouth haemorrhage [Unknown]
  - Tooth extraction [Unknown]
  - Pyrexia [Unknown]
  - Gingival bleeding [Recovered/Resolved]

NARRATIVE: CASE EVENT DATE: 20240215
